FAERS Safety Report 21523781 (Version 1)
Quarter: 2022Q4

REPORT INFORMATION
  Report Type: Spontaneous
  Country: GB (occurrence: GB)
  Receive Date: 20221029
  Receipt Date: 20221029
  Transmission Date: 20230112
  Serious: Yes (Hospitalization)
  Sender: FDA-Public Use
  Company Number: GB-AstraZeneca-2021A858249

PATIENT
  Age: 64 Year
  Sex: Male

DRUGS (11)
  1. RAMIPRIL [Suspect]
     Active Substance: RAMIPRIL
     Indication: Cough
     Dosage: THERAPY DURATION : 4 DAYS
     Route: 048
     Dates: start: 20211116, end: 20211119
  2. DAPAGLIFLOZIN [Suspect]
     Active Substance: DAPAGLIFLOZIN
     Indication: Acute myocardial infarction
     Dosage: 10 MILLIGRAM DAILY; THERAPY END DATE : NOT ASKED, UNIT DOSE : 10 MG, FREQUENCY ; 1 , FREQUENCY TIME
     Route: 048
     Dates: start: 20211116
  3. ASPIRIN [Concomitant]
     Active Substance: ASPIRIN
     Indication: Dressler^s syndrome
     Route: 048
     Dates: start: 20211116
  4. ATORVASTATIN [Concomitant]
     Active Substance: ATORVASTATIN
     Indication: Dressler^s syndrome
     Route: 048
     Dates: start: 20211116
  5. BECLOMETHASONE DIPROPIONATE [Concomitant]
     Active Substance: BECLOMETHASONE DIPROPIONATE
     Indication: Dyspnoea
     Route: 055
  6. BISOPROLOL [Concomitant]
     Active Substance: BISOPROLOL
     Indication: Dressler^s syndrome
     Route: 048
     Dates: start: 20211116
  7. EPLERENONE [Concomitant]
     Active Substance: EPLERENONE
     Indication: Dressler^s syndrome
     Route: 048
     Dates: start: 20211116
  8. NITROGLYCERIN [Concomitant]
     Active Substance: NITROGLYCERIN
     Indication: Dressler^s syndrome
     Route: 060
     Dates: start: 20211116
  9. LANSOPRAZOLE [Concomitant]
     Active Substance: LANSOPRAZOLE
     Indication: Gastrointestinal disorder prophylaxis
     Route: 048
     Dates: start: 20211116
  10. ALBUTEROL [Concomitant]
     Active Substance: ALBUTEROL
     Indication: Dyspnoea
     Route: 055
  11. TICAGRELOR [Concomitant]
     Active Substance: TICAGRELOR
     Indication: Dressler^s syndrome
     Route: 048
     Dates: start: 20211116

REACTIONS (1)
  - Lower respiratory tract infection [Recovered/Resolved]

NARRATIVE: CASE EVENT DATE: 20211118
